FAERS Safety Report 18646161 (Version 1)
Quarter: 2020Q4

REPORT INFORMATION
  Report Type: Spontaneous
  Country: US (occurrence: US)
  Receive Date: 20201221
  Receipt Date: 20201221
  Transmission Date: 20210114
  Serious: No
  Sender: FDA-Public Use
  Company Number: US-REGENERON PHARMACEUTICALS, INC.-2020-36443

PATIENT

DRUGS (9)
  1. EYLEA [Suspect]
     Active Substance: AFLIBERCEPT
     Dosage: Q5W, LAST DOSE
     Route: 031
     Dates: start: 202005, end: 202005
  2. VITAMIN D3 [Concomitant]
     Active Substance: CHOLECALCIFEROL
     Indication: PRODUCT USED FOR UNKNOWN INDICATION
  3. CALCIUM [Concomitant]
     Active Substance: CALCIUM
     Indication: PRODUCT USED FOR UNKNOWN INDICATION
  4. TRIAMCINOLONE [Suspect]
     Active Substance: TRIAMCINOLONE
     Indication: LIP OEDEMA
     Dosage: 0.1 %, UNK
  5. CURCUMIN [Concomitant]
     Active Substance: CURCUMIN
     Indication: PRODUCT USED FOR UNKNOWN INDICATION
  6. EYLEA [Suspect]
     Active Substance: AFLIBERCEPT
     Indication: NEOVASCULAR AGE-RELATED MACULAR DEGENERATION
     Dosage: Q5W
     Route: 031
     Dates: start: 20200331
  7. AVASTIN [Suspect]
     Active Substance: BEVACIZUMAB
     Indication: NEOVASCULAR AGE-RELATED MACULAR DEGENERATION
     Dosage: UNK
     Dates: start: 201909, end: 2020
  8. LEVOTHYROXINE. [Concomitant]
     Active Substance: LEVOTHYROXINE
     Indication: PRODUCT USED FOR UNKNOWN INDICATION
  9. LIOTHYRONINE [Concomitant]
     Active Substance: LIOTHYRONINE
     Indication: PRODUCT USED FOR UNKNOWN INDICATION

REACTIONS (14)
  - Dry mouth [Unknown]
  - Muscle spasms [Not Recovered/Not Resolved]
  - Intraocular pressure increased [Recovered/Resolved]
  - Allergy to metals [Unknown]
  - Vision blurred [Recovered/Resolved]
  - Lip pain [Unknown]
  - Lip swelling [Recovering/Resolving]
  - Lip dry [Unknown]
  - Oral discharge [Recovered/Resolved]
  - Drug ineffective [Unknown]
  - Visual impairment [Unknown]
  - Drug hypersensitivity [Unknown]
  - Dry eye [Unknown]
  - Eye pain [Unknown]

NARRATIVE: CASE EVENT DATE: 20200402
